FAERS Safety Report 25134633 (Version 1)
Quarter: 2025Q1

REPORT INFORMATION
  Report Type: Spontaneous
  Country: US (occurrence: US)
  Receive Date: 20250328
  Receipt Date: 20250328
  Transmission Date: 20250408
  Serious: No
  Sender: GLENMARK
  Company Number: US-GLENMARK PHARMACEUTICALS-2024GMK094649

PATIENT

DRUGS (1)
  1. LEVONORGESTREL [Suspect]
     Active Substance: LEVONORGESTREL
     Indication: Oral contraception
     Route: 065

REACTIONS (7)
  - Pain [Unknown]
  - Hormone level abnormal [Unknown]
  - Peripheral swelling [Unknown]
  - Abdominal pain [Unknown]
  - Headache [Unknown]
  - Fatigue [Unknown]
  - Product substitution issue [Unknown]
